FAERS Safety Report 12323408 (Version 2)
Quarter: 2016Q2

REPORT INFORMATION
  Report Type: Spontaneous
  Country: US (occurrence: US)
  Receive Date: 20160502
  Receipt Date: 20160511
  Transmission Date: 20160815
  Serious: Yes (Hospitalization, Other)
  Sender: FDA-Public Use
  Company Number: US-SMITH AND NEPHEW, INC-2016SMT00347

PATIENT
  Age: 68 Year
  Sex: Male
  Weight: 122.9 kg

DRUGS (3)
  1. UNSPECIFIED HIGH BLOOD PRESSURE MEDICATION [Concomitant]
     Active Substance: UNSPECIFIED INGREDIENT
  2. UNSPECIFIED HIGH CHOLESTEROL MEDICATION [Concomitant]
     Active Substance: UNSPECIFIED INGREDIENT
     Dosage: UNK
  3. REGRANEX [Suspect]
     Active Substance: BECAPLERMIN
     Indication: DIABETIC FOOT
     Dosage: UNK, 1X/DAY
     Route: 061
     Dates: start: 201603

REACTIONS (4)
  - Arterial disorder [Unknown]
  - Stent placement [Unknown]
  - Pulse absent [Unknown]
  - Stent patency maintenance [Unknown]

NARRATIVE: CASE EVENT DATE: 2016
